FAERS Safety Report 23428760 (Version 1)
Quarter: 2024Q1

REPORT INFORMATION
  Report Type: Spontaneous
  Country: US (occurrence: None)
  Receive Date: 20240122
  Receipt Date: 20240122
  Transmission Date: 20240410
  Serious: No
  Sender: FDA-Public Use
  Company Number: None

PATIENT

DRUGS (2)
  1. BUPROPION [Suspect]
     Active Substance: BUPROPION
  2. OXYCODONE/APAP [Suspect]
     Active Substance: ACETAMINOPHEN\OXYCODONE HYDROCHLORIDE

REACTIONS (6)
  - Product commingling [None]
  - Wrong product administered [None]
  - Vomiting [None]
  - Dizziness [None]
  - Intercepted product dispensing error [None]
  - Prescription drug used without a prescription [None]

NARRATIVE: CASE EVENT DATE: 20231024
